FAERS Safety Report 8966653 (Version 1)
Quarter: 2012Q4

REPORT INFORMATION
  Report Type: Spontaneous
  Country: GB (occurrence: None)
  Receive Date: 20121206
  Receipt Date: 20121206
  Transmission Date: 20130627
  Serious: Yes (Hospitalization, Other)
  Sender: FDA-Public Use
  Company Number: 2012/175

PATIENT
  Age: 2 Year
  Sex: Female
  Weight: 12 kg

DRUGS (1)
  1. SODIUM VALPROATE [Suspect]
     Dosage: 4 g (330 mg/kg)

REACTIONS (4)
  - Accidental overdose [None]
  - Loss of consciousness [None]
  - Electrocardiogram QT prolonged [None]
  - Continuous haemodiafiltration [None]
